FAERS Safety Report 11283219 (Version 1)
Quarter: 2015Q3

REPORT INFORMATION
  Report Type: Spontaneous
  Country: US (occurrence: None)
  Receive Date: 20150717
  Receipt Date: 20150717
  Transmission Date: 20151125
  Serious: Yes (Other)
  Sender: FDA-Public Use
  Company Number: None

PATIENT
  Age: 10 Year
  Sex: Male
  Weight: 56.7 kg

DRUGS (2)
  1. OXCARBAZINE [Concomitant]
  2. DAYTRANA [Suspect]
     Active Substance: METHYLPHENIDATE
     Indication: ATTENTION DEFICIT/HYPERACTIVITY DISORDER
     Dosage: DAYTRNA PATCH ONCE DAILY APPLIED AS MEDICATED PATCH TO SKIN
     Route: 061

REACTIONS (1)
  - Application site discolouration [None]
